FAERS Safety Report 14554552 (Version 1)
Quarter: 2018Q1

REPORT INFORMATION
  Report Type: Spontaneous
  Country: US (occurrence: US)
  Receive Date: 20180220
  Receipt Date: 20180220
  Transmission Date: 20180509
  Serious: No
  Sender: FDA-Public Use
  Company Number: US-009507513-1802USA008990

PATIENT
  Age: 6 Year

DRUGS (1)
  1. EMEND [Suspect]
     Active Substance: APREPITANT
     Indication: VOMITING
     Dosage: 80 MG, UNKNOWN
     Route: 048

REACTIONS (2)
  - No adverse event [Unknown]
  - Product use in unapproved indication [Unknown]
